FAERS Safety Report 20532095 (Version 2)
Quarter: 2022Q1

REPORT INFORMATION
  Report Type: Spontaneous
  Country: US (occurrence: None)
  Receive Date: 20220301
  Receipt Date: 20220315
  Transmission Date: 20220423
  Serious: Yes (Hospitalization, Other)
  Sender: FDA-Public Use
  Company Number: US-FARMAPROD-202202-0286

PATIENT
  Age: 86 Year
  Sex: Male

DRUGS (8)
  1. OXERVATE [Suspect]
     Active Substance: CENEGERMIN-BKBJ
     Indication: Neurotrophic keratopathy
     Route: 047
     Dates: start: 20220120
  2. HYDROCHLOROTHIAZIDE [Concomitant]
     Active Substance: HYDROCHLOROTHIAZIDE
  3. CALCIUM [Concomitant]
     Active Substance: CALCIUM
  4. OMEGA 3 [Concomitant]
     Active Substance: CAPSAICIN
  5. GLUCOSAMINE [Concomitant]
     Active Substance: GLUCOSAMINE
  6. DICLOFENAC [Concomitant]
     Active Substance: DICLOFENAC
  7. LECITHIN [Concomitant]
     Active Substance: LECITHIN
  8. VITAMINE B [Concomitant]

REACTIONS (1)
  - Haemorrhagic stroke [Unknown]

NARRATIVE: CASE EVENT DATE: 20220211
